FAERS Safety Report 16345533 (Version 2)
Quarter: 2019Q2

REPORT INFORMATION
  Report Type: Spontaneous
  Country: BR (occurrence: BR)
  Receive Date: 20190523
  Receipt Date: 20190528
  Transmission Date: 20190711
  Serious: Yes (Other)
  Sender: FDA-Public Use
  Company Number: BR-AMGEN-BRASP2015066131

PATIENT
  Age: 47 Year
  Sex: Male

DRUGS (3)
  1. METHOTREXATE. [Concomitant]
     Active Substance: METHOTREXATE
     Indication: RHEUMATIC DISORDER
     Dosage: UNK
     Dates: start: 2015
  2. ENBREL [Suspect]
     Active Substance: ETANERCEPT
     Indication: OSTEOARTHRITIS
     Dosage: EVERY 14 DAYS, UNK
     Route: 065
     Dates: start: 2015, end: 201904
  3. ADALIMUMAB [Concomitant]
     Active Substance: ADALIMUMAB
     Indication: OSTEOARTHRITIS
     Dosage: EVERY 14 DAYS
     Dates: start: 2015

REACTIONS (5)
  - Product use issue [Unknown]
  - Off label use [Unknown]
  - Infection [Not Recovered/Not Resolved]
  - Sepsis [Not Recovered/Not Resolved]
  - Product use in unapproved indication [Unknown]

NARRATIVE: CASE EVENT DATE: 2015
